FAERS Safety Report 8435550 (Version 4)
Quarter: 2014Q2

REPORT INFORMATION
  Report Type: Spontaneous
  Country: FR (occurrence: FR)
  Receive Date: 20120301
  Receipt Date: 20140423
  Transmission Date: 20141212
  Serious: Yes (Hospitalization)
  Sender: FDA-Public Use
  Company Number: FR-PFIZER INC-2012047686

PATIENT
  Age: 90 Year
  Sex: Female

DRUGS (6)
  1. TRIFLUCAN [Suspect]
     Indication: ORAL FUNGAL INFECTION
     Dosage: 50 MG, 2X/DAY
     Route: 048
     Dates: start: 20111118, end: 20111216
  2. CEFTRIAXONE SODIUM [Suspect]
     Indication: CHOLANGITIS
     Dosage: 2 G, UNK
     Dates: start: 20111216, end: 20111216
  3. DISULONE [Suspect]
     Indication: PEMPHIGOID
     Dosage: 100 MG, DAILY
     Route: 048
     Dates: start: 20111029, end: 20111216
  4. FLAGYL [Suspect]
     Indication: CHOLANGITIS
     Dosage: 500 G, UNK
     Dates: start: 20111216, end: 20111221
  5. PREVISCAN [Suspect]
     Indication: DEEP VEIN THROMBOSIS
     Dosage: 15 MG, 1X/DAY
     Route: 048
     Dates: start: 20111207
  6. DERMOVAL [Concomitant]
     Indication: PEMPHIGOID
     Dosage: 3 DF, DAILY
     Route: 061
     Dates: start: 201109

REACTIONS (1)
  - Drug reaction with eosinophilia and systemic symptoms [Recovering/Resolving]
